FAERS Safety Report 7506617-X (Version None)
Quarter: 2011Q2

REPORT INFORMATION
  Report Type: 
  Country: None (occurrence: None)
  Receive Date: 20110526
  Receipt Date: 20110415
  Transmission Date: 20111010
  Serious: Yes (Other)
  Sender: FDA-Public Use
  Company Number: US-BAYER-2011-015486

PATIENT
  Age: 59 Year
  Sex: Male

DRUGS (4)
  1. MAGNEVIST [Suspect]
     Indication: IMAGING PROCEDURE
  2. OMNISCAN [Suspect]
     Indication: IMAGING PROCEDURE
     Dosage: UNK
     Dates: start: 20050314, end: 20050314
  3. OPTIMARK [Suspect]
     Indication: IMAGING PROCEDURE
  4. GADOLINIUM IN UNSPECIFIED DRUG [Suspect]

REACTIONS (15)
  - JOINT CONTRACTURE [None]
  - OEDEMA PERIPHERAL [None]
  - EXTREMITY CONTRACTURE [None]
  - SKIN EXFOLIATION [None]
  - RASH [None]
  - JOINT RANGE OF MOTION DECREASED [None]
  - NEPHROGENIC SYSTEMIC FIBROSIS [None]
  - SKIN HYPERTROPHY [None]
  - SCAR [None]
  - PAIN [None]
  - PRURITUS [None]
  - DEFORMITY [None]
  - MUSCULOSKELETAL STIFFNESS [None]
  - SKIN TIGHTNESS [None]
  - ARTHRALGIA [None]
